FAERS Safety Report 10047292 (Version 2)
Quarter: 2014Q1

REPORT INFORMATION
  Report Type: Spontaneous
  Country: US (occurrence: US)
  Receive Date: 20140331
  Receipt Date: 20140331
  Transmission Date: 20141002
  Serious: No
  Sender: FDA-Public Use
  Company Number: US-MYLANLABS-2013S1028167

PATIENT
  Age: 69 Year
  Sex: Female

DRUGS (6)
  1. FENTANYL TRANSDERMAL SYSTEM [Suspect]
     Indication: PAIN
     Dosage: Q72 HOURS
     Route: 062
     Dates: start: 20131208
  2. TOPAMAX [Concomitant]
     Indication: MIGRAINE
     Route: 048
  3. VITAMIN B 2 [Concomitant]
  4. VITAMIN B 6 [Concomitant]
  5. HERBAL [Concomitant]
  6. VITAMINS, OTHER COMBINATIONS [Concomitant]
     Dosage: MIGRELIEF + M

REACTIONS (2)
  - Chromaturia [Recovered/Resolved]
  - Headache [Not Recovered/Not Resolved]
